FAERS Safety Report 7579489-5 (Version None)
Quarter: 2011Q2

REPORT INFORMATION
  Report Type: 
  Country: None (occurrence: None)
  Receive Date: 20110629
  Receipt Date: 20110118
  Transmission Date: 20111010
  Serious: Yes (Death, Other)
  Sender: FDA-Public Use
  Company Number: US-BAYER-200934780NA

PATIENT
  Age: 56 Year
  Sex: Male
  Weight: 90.703 kg

DRUGS (13)
  1. ENALAPRIL MALEATE [Concomitant]
     Dosage: UNK
     Dates: start: 20030401
  2. LASIX [Concomitant]
     Dosage: UNK
     Dates: start: 20030401
  3. METOPROLOL TARTRATE [Concomitant]
  4. TRASYLOL [Suspect]
     Indication: TRICUSPID VALVE REPAIR
  5. SPIRONOLACTONE [Concomitant]
     Dosage: UNK
     Dates: start: 20030401
  6. ISORDIL [Concomitant]
  7. ACETYLSALICYLIC ACID SRT [Concomitant]
  8. HEPARIN [Concomitant]
     Dosage: 40000 U, UNK
     Route: 042
     Dates: start: 20030521
  9. TRASYLOL [Suspect]
     Indication: CORONARY ARTERY BYPASS
     Dosage: 101 ML, UNK
     Dates: start: 20030521
  10. ZOCOR [Concomitant]
  11. INSULIN [Concomitant]
     Dosage: 130 U, UNK
     Route: 042
     Dates: start: 20030521
  12. TRASYLOL [Suspect]
     Indication: MITRAL VALVE REPLACEMENT
  13. PLAVIX [Concomitant]

REACTIONS (60)
  - UNEVALUABLE EVENT [None]
  - ANHEDONIA [None]
  - DISABILITY [None]
  - FEAR [None]
  - ANXIETY [None]
  - FEAR OF DEATH [None]
  - POST PROCEDURAL SEPSIS [None]
  - ACIDOSIS [None]
  - SUPRAVENTRICULAR TACHYCARDIA [None]
  - CYTOMEGALOVIRUS INFECTION [None]
  - PLEURISY [None]
  - ARTERIOSCLEROSIS CORONARY ARTERY [None]
  - HYPOTENSION [None]
  - GENERAL PHYSICAL HEALTH DETERIORATION [None]
  - RENAL FAILURE [None]
  - EMOTIONAL DISTRESS [None]
  - TRAUMATIC LUNG INJURY [None]
  - LACUNAR INFARCTION [None]
  - CEREBROVASCULAR DISORDER [None]
  - FLUID OVERLOAD [None]
  - CARDIAC ARREST [None]
  - RENAL INJURY [None]
  - RENAL DISORDER [None]
  - CORONARY ARTERY OCCLUSION [None]
  - CARDIOMEGALY [None]
  - ARRHYTHMIA [None]
  - HYPOXIC-ISCHAEMIC ENCEPHALOPATHY [None]
  - COMA [None]
  - GANGRENE [None]
  - PAIN [None]
  - DEPRESSION [None]
  - BRAIN NEOPLASM [None]
  - PERICARDITIS [None]
  - STAPHYLOCOCCUS TEST POSITIVE [None]
  - BLOODY DISCHARGE [None]
  - RENAL FAILURE ACUTE [None]
  - RESPIRATORY DISTRESS [None]
  - CEREBRAL ISCHAEMIA [None]
  - THROMBOSIS [None]
  - PSEUDOMONAS TEST POSITIVE [None]
  - BLISTER [None]
  - RESPIRATORY FAILURE [None]
  - HAEMODIALYSIS [None]
  - SYSTEMIC MYCOSIS [None]
  - CEREBRAL ARTERIOSCLEROSIS [None]
  - INTRACARDIAC THROMBUS [None]
  - PERITONITIS [None]
  - PROTEUS TEST POSITIVE [None]
  - CORYNEBACTERIUM TEST POSITIVE [None]
  - DEATH [None]
  - MULTI-ORGAN FAILURE [None]
  - INJURY [None]
  - NERVOUSNESS [None]
  - ASCITES [None]
  - PULMONARY THROMBOSIS [None]
  - ORGANISING PNEUMONIA [None]
  - MYOCARDIAL ISCHAEMIA [None]
  - COAGULOPATHY [None]
  - HEPATIC FAILURE [None]
  - BRAIN ABSCESS [None]
